FAERS Safety Report 8169350-X (Version None)
Quarter: 2012Q1

REPORT INFORMATION
  Report Type: 
  Country: None (occurrence: None)
  Receive Date: 20120222
  Receipt Date: 20120209
  Transmission Date: 20120608
  Serious: Yes (Disabling)
  Sender: FDA-Public Use
  Company Number: 2012-00185

PATIENT
  Age: 66 Year
  Sex: Female
  Weight: 43.6 kg

DRUGS (5)
  1. LANTUS [Concomitant]
  2. LISINOPRIL [Suspect]
     Indication: PRODUCT USED FOR UNKNOWN INDICATION
     Dates: start: 20111012
  3. CETIRIZINE [Concomitant]
  4. BENDROFLUMETHIAZIDE [Concomitant]
  5. AMLODIPINE [Concomitant]

REACTIONS (4)
  - RAYNAUD'S PHENOMENON [None]
  - RHINORRHOEA [None]
  - CONDITION AGGRAVATED [None]
  - HYPERKALAEMIA [None]
